FAERS Safety Report 23150045 (Version 1)
Quarter: 2023Q4

REPORT INFORMATION
  Report Type: Spontaneous
  Country: CN (occurrence: CN)
  Receive Date: 20231106
  Receipt Date: 20231106
  Transmission Date: 20240109
  Serious: Yes (Other)
  Sender: FDA-Public Use
  Company Number: CN-BAUSCH-BL-2023-016451

PATIENT
  Age: 87 Year
  Sex: Female

DRUGS (7)
  1. DEXAMETHASONE [Suspect]
     Active Substance: DEXAMETHASONE
     Indication: Diffuse large B-cell lymphoma stage IV
     Dosage: DAY 1-5
     Route: 065
     Dates: start: 20210528
  2. DEXAMETHASONE [Suspect]
     Active Substance: DEXAMETHASONE
     Dosage: DAY 1-5, R-MINICHOP TWO CYCLES
     Route: 065
     Dates: start: 20210623, end: 2021
  3. RITUXIMAB [Suspect]
     Active Substance: RITUXIMAB
     Indication: Diffuse large B-cell lymphoma stage IV
     Dosage: DAY 0
     Route: 065
     Dates: start: 20210528, end: 2021
  4. RITUXIMAB [Suspect]
     Active Substance: RITUXIMAB
     Dosage: DAY 0, R-MINICHOP TWO CYCLES
     Route: 065
     Dates: start: 20210623, end: 2021
  5. CYCLOPHOSPHAMIDE [Suspect]
     Active Substance: CYCLOPHOSPHAMIDE
     Indication: Diffuse large B-cell lymphoma stage IV
     Dosage: DAY 1, R-MINICHOP TWO CYCLES
     Route: 065
     Dates: start: 20210623, end: 2021
  6. DOXORUBICIN HYDROCHLORIDE [Suspect]
     Active Substance: DOXORUBICIN HYDROCHLORIDE
     Indication: Diffuse large B-cell lymphoma stage IV
     Dosage: DAY 1, R-MINICHOP TWO CYCLES
     Route: 065
     Dates: start: 20210623, end: 2021
  7. VINDESINE [Suspect]
     Active Substance: VINDESINE
     Indication: Diffuse large B-cell lymphoma stage IV
     Dosage: DAY 1, R-MINICHOP TWO CYCLES
     Route: 065
     Dates: start: 20210623, end: 2021

REACTIONS (4)
  - Myelosuppression [Unknown]
  - Pneumonia [Unknown]
  - Drug ineffective [Unknown]
  - Adverse drug reaction [Unknown]

NARRATIVE: CASE EVENT DATE: 20210101
